FAERS Safety Report 11720428 (Version 2)
Quarter: 2015Q4

REPORT INFORMATION
  Report Type: Spontaneous
  Country: US (occurrence: US)
  Receive Date: 20151110
  Receipt Date: 20151130
  Transmission Date: 20160304
  Serious: Yes (Hospitalization)
  Sender: FDA-Public Use
  Company Number: US-PFIZER INC-2015375219

PATIENT
  Age: 69 Year
  Sex: Female
  Weight: 118 kg

DRUGS (33)
  1. TIKOSYN [Suspect]
     Active Substance: DOFETILIDE
     Indication: ATRIAL FIBRILLATION
     Dosage: 125 MG, 2X/DAY
     Route: 048
  2. TIKOSYN [Suspect]
     Active Substance: DOFETILIDE
     Dosage: 125 UG, UNK
     Route: 048
     Dates: start: 20151104
  3. ASPIRIN. [Concomitant]
     Active Substance: ASPIRIN
     Dosage: 81 MG, UNK
  4. CALCIUM/VITAMIN D [Concomitant]
     Active Substance: CALCIUM\VITAMIN D
     Dosage: 500 MG, DAILY
  5. ASMANEX [Concomitant]
     Active Substance: MOMETASONE FUROATE
     Dosage: 225 MG, 2X/DAY
  6. PROTONIX [Concomitant]
     Active Substance: PANTOPRAZOLE SODIUM
     Dosage: 40 MG, DAILY
  7. TORSEMIDE. [Concomitant]
     Active Substance: TORSEMIDE
     Dosage: 20 MG, DAILY
  8. HYDROCORTISONE. [Concomitant]
     Active Substance: HYDROCORTISONE
     Dosage: 1 %, AS NEEDED (1 % TID )
  9. TRAZODONE [Concomitant]
     Active Substance: TRAZODONE HYDROCHLORIDE
     Dosage: UNK
  10. LIPITOR [Concomitant]
     Active Substance: ATORVASTATIN CALCIUM
     Dosage: 5 MG, DAILY
  11. NIZORAL [Concomitant]
     Active Substance: KETOCONAZOLE
     Dosage: 2X/DAY (ONE APPLICATION BID TO AFFECTED SKIN AREAS)
  12. GABAPENTIN. [Concomitant]
     Active Substance: GABAPENTIN
     Dosage: 300 MG, 2X/DAY
  13. COUMADINE [Concomitant]
     Active Substance: WARFARIN SODIUM
     Dosage: 3 MG, DAILY
  14. ALBUTEROL. [Concomitant]
     Active Substance: ALBUTEROL
     Dosage: 2.5 MG, UNK (2.5 MG/3 ML PRN )
  15. LISTRIL [Concomitant]
     Active Substance: LISINOPRIL
     Dosage: UNK
  16. NORVASC [Concomitant]
     Active Substance: AMLODIPINE BESYLATE
     Dosage: 5 MG, DAILY (AT BEDTIME)
  17. MAGNESIUM OXIDE. [Concomitant]
     Active Substance: MAGNESIUM OXIDE
     Dosage: 400 MG, DAILY
  18. SALMETEROL [Concomitant]
     Active Substance: SALMETEROL
     Dosage: 50 UG, 2X/DAY
  19. MELATONIN [Concomitant]
     Active Substance: MELATONIN
     Dosage: 3 MG, DAILY
  20. NIZORAL [Concomitant]
     Active Substance: KETOCONAZOLE
     Dosage: 2%, AS NEEDED (2% SHAMPOO TOPICAL PRN)
     Route: 061
  21. MIRALAX [Concomitant]
     Active Substance: POLYETHYLENE GLYCOL 3350
     Dosage: 17 G, DAILY
  22. ALBUTEROL. [Concomitant]
     Active Substance: ALBUTEROL
     Indication: RESPIRATORY SYMPTOM
     Dosage: AS NEEDED
  23. REMERON [Concomitant]
     Active Substance: MIRTAZAPINE
     Dosage: 30 MG, DAILY (AT BEDTIME)
  24. MORPHINE [Concomitant]
     Active Substance: MORPHINE
     Dosage: 15 MG, 2X/DAY
  25. VITAMIN D [Concomitant]
     Active Substance: CHOLECALCIFEROL
     Dosage: 1000 IU, 2X/DAY
  26. LIDODERM [Concomitant]
     Active Substance: LIDOCAINE
     Dosage: 5 MG, DAILY
  27. NITROGLYCERIN. [Concomitant]
     Active Substance: NITROGLYCERIN
     Indication: CHEST PAIN
     Dosage: AS NEEDED (UP TO THREE TABS IN 15 MINUTES )
     Route: 060
  28. HYDROXYZINE [Concomitant]
     Active Substance: HYDROXYZINE\HYDROXYZINE HYDROCHLORIDE
     Dosage: UNK
  29. CYMBALTA [Concomitant]
     Active Substance: DULOXETINE HYDROCHLORIDE
     Dosage: 90 MG, DAILY
  30. IMDUR [Concomitant]
     Active Substance: ISOSORBIDE MONONITRATE
     Dosage: 30 MG, DAILY
  31. LOPRESSOR [Concomitant]
     Active Substance: METOPROLOL TARTRATE
     Dosage: 25 MG, 2X/DAY
  32. TORSEMIDE. [Concomitant]
     Active Substance: TORSEMIDE
     Dosage: 60 MG, UNK (EVERY MORNING)
  33. ROBITUSSIN AC [Concomitant]
     Active Substance: CODEINE PHOSPHATE\GUAIFENESIN
     Dosage: 5 ML, AS NEEDED

REACTIONS (2)
  - Depression [Recovered/Resolved]
  - Suicidal ideation [Recovered/Resolved]
